FAERS Safety Report 12355354 (Version 1)
Quarter: 2016Q2

REPORT INFORMATION
  Report Type: Spontaneous
  Country: US (occurrence: US)
  Receive Date: 20160511
  Receipt Date: 20160511
  Transmission Date: 20160815
  Serious: Yes (Other)
  Sender: FDA-Public Use
  Company Number: US-AKORN PHARMACEUTICALS-2016AKN00267

PATIENT
  Sex: Female
  Weight: 55.33 kg

DRUGS (4)
  1. MYORISAN [Suspect]
     Active Substance: ISOTRETINOIN
     Indication: DRUG THERAPY
  2. MYORISAN [Suspect]
     Active Substance: ISOTRETINOIN
     Indication: DRUG THERAPY
  3. MYORISAN [Suspect]
     Active Substance: ISOTRETINOIN
     Indication: ACNE
     Dosage: UNK, 1X/DAY
     Route: 048
     Dates: start: 20160126, end: 2016
  4. MYORISAN [Suspect]
     Active Substance: ISOTRETINOIN
     Indication: ACNE
     Dosage: UNK, 1X/DAY
     Route: 048
     Dates: start: 20160126, end: 2016

REACTIONS (3)
  - Dizziness [Recovering/Resolving]
  - Panic attack [Unknown]
  - Vertigo [Recovering/Resolving]

NARRATIVE: CASE EVENT DATE: 2016
